FAERS Safety Report 9271460 (Version 3)
Quarter: 2013Q4

REPORT INFORMATION
  Report Type: Spontaneous
  Country: US (occurrence: US)
  Receive Date: 20130506
  Receipt Date: 20131231
  Transmission Date: 20140711
  Serious: No
  Sender: FDA-Public Use
  Company Number: US-PFIZER INC-2013136440

PATIENT
  Age: 48 Year
  Sex: Female
  Weight: 113 kg

DRUGS (3)
  1. XELJANZ [Suspect]
     Indication: RHEUMATOID ARTHRITIS
     Dosage: 5 MG, TWICE DAILY
     Route: 048
     Dates: start: 20130201
  2. VITAMIN D [Concomitant]
     Dosage: UNK
  3. FOLIC ACID [Concomitant]
     Dosage: UNK

REACTIONS (8)
  - Oral discomfort [Not Recovered/Not Resolved]
  - Erythema [Unknown]
  - Swelling face [Unknown]
  - Feeling hot [Unknown]
  - Miliaria [Unknown]
  - Oral mucosal blistering [Unknown]
  - Fungal infection [Recovered/Resolved]
  - Throat irritation [Not Recovered/Not Resolved]
